FAERS Safety Report 6595791-8 (Version None)
Quarter: 2010Q1

REPORT INFORMATION
  Report Type: 
  Country: None (occurrence: None)
  Receive Date: 20100223
  Receipt Date: 20100211
  Transmission Date: 20100710
  Serious: Yes (Other)
  Sender: FDA-Public Use
  Company Number: US-JNJFOC-20100206866

PATIENT
  Age: 6 Decade
  Sex: Male

DRUGS (3)
  1. REOPRO [Suspect]
     Indication: DRUG USE FOR UNKNOWN INDICATION
  2. ACETYLSALICYLIC ACID [Concomitant]
     Indication: DRUG USE FOR UNKNOWN INDICATION
  3. CLOPIDOGREL [Concomitant]
     Indication: DRUG USE FOR UNKNOWN INDICATION

REACTIONS (2)
  - POST PROCEDURAL MYOCARDIAL INFARCTION [None]
  - TONGUE HAEMORRHAGE [None]
